FAERS Safety Report 8599083-7 (Version None)
Quarter: 2012Q3

REPORT INFORMATION
  Report Type: 
  Country: None (occurrence: None)
  Receive Date: 20120806
  Receipt Date: 20120806
  Transmission Date: 20120928
  Serious: Yes (Hospitalization)
  Sender: FDA-Public Use
  Company Number: None

PATIENT
  Sex: Female
  Weight: 68.9 kg

DRUGS (1)
  1. RIVAROXABAN 20MG JANSSEN [Suspect]
     Indication: ATRIAL FIBRILLATION
     Dosage: 20MG DAILY PO
     Route: 048
     Dates: start: 20120119, end: 20120727

REACTIONS (11)
  - HYPOTENSION [None]
  - CREATININE RENAL CLEARANCE DECREASED [None]
  - BLOOD CREATININE INCREASED [None]
  - CHOLECYSTECTOMY [None]
  - NAUSEA [None]
  - LETHARGY [None]
  - RENAL IMPAIRMENT [None]
  - HAEMOGLOBIN DECREASED [None]
  - HAEMORRHAGIC ANAEMIA [None]
  - ABDOMINAL PAIN [None]
  - HAEMATOCRIT DECREASED [None]
